FAERS Safety Report 8571375-7 (Version None)
Quarter: 2012Q3

REPORT INFORMATION
  Report Type: 
  Country: None (occurrence: None)
  Receive Date: 20120806
  Receipt Date: 20120724
  Transmission Date: 20120928
  Serious: No
  Sender: FDA-Public Use
  Company Number: US-ASTRAZENECA-2012SE40011

PATIENT
  Sex: Female

DRUGS (1)
  1. NEXIUM [Suspect]
     Route: 048

REACTIONS (4)
  - MEMORY IMPAIRMENT [None]
  - SYSTEMIC LUPUS ERYTHEMATOSUS [None]
  - PAIN [None]
  - MALAISE [None]
